FAERS Safety Report 8045705 (Version 7)
Quarter: 2014Q1

REPORT INFORMATION
  Report Type: Spontaneous
  Country: US (occurrence: US)
  Receive Date: 20110720
  Receipt Date: 20140102
  Transmission Date: 20141002
  Serious: No
  Sender: FDA-Public Use
  Company Number: US-B.I. PHARMACEUTICALS,INC./RIDGEFIELD-2011-BP-17860BP

PATIENT
  Age: 96 Year
  Sex: Female

DRUGS (8)
  1. MICARDIS TABLETS (BLIND) [Suspect]
     Indication: HYPERTENSION
     Dosage: 80 MG
     Route: 048
     Dates: start: 201106
  2. MICARDIS TABLETS (BLIND) [Suspect]
     Dosage: 80 MG
     Route: 048
     Dates: start: 20120115
  3. MICARDIS TABLETS (BLIND) [Suspect]
     Route: 048
  4. MICARDIS TABLETS (BLIND) [Suspect]
     Dosage: 80 MG
     Route: 048
     Dates: start: 2011
  5. TERAZOSIN [Concomitant]
     Indication: HYPERTENSION
     Dosage: 1 MG
     Route: 048
     Dates: end: 201110
  6. HYDRALAZINE [Concomitant]
     Indication: HYPERTENSION
     Dosage: 100 MG
     Route: 048
  7. LEVOTHYROXINE [Concomitant]
     Indication: HYPOTHYROIDISM
     Dosage: 88 MCG
     Route: 048
  8. ASPIRIN [Concomitant]
     Dosage: 81 MG
     Route: 048

REACTIONS (7)
  - Drug ineffective [Not Recovered/Not Resolved]
  - Blood pressure systolic increased [Not Recovered/Not Resolved]
  - Hypertension [Not Recovered/Not Resolved]
  - Product counterfeit [Unknown]
  - Hypotension [Unknown]
  - Blood pressure increased [Unknown]
  - Blood pressure fluctuation [Unknown]
